FAERS Safety Report 16139119 (Version 4)
Quarter: 2020Q1

REPORT INFORMATION
  Report Type: Report from Study
  Country: None (occurrence: BR)
  Receive Date: 20190330
  Receipt Date: 20200225
  Transmission Date: 20200409
  Serious: Yes (Other)
  Sender: FDA-Public Use
  Company Number: BR-ABBVIE-19K-020-2723116-00

PATIENT
  Sex: Female
  Weight: 122 kg

DRUGS (2)
  1. HUMIRA [Suspect]
     Active Substance: ADALIMUMAB
     Indication: PSORIATIC ARTHROPATHY
     Route: 058
     Dates: start: 20160729
  2. PARACETAMOL [Suspect]
     Active Substance: ACETAMINOPHEN
     Indication: PAIN
     Route: 065
     Dates: start: 2017

REACTIONS (13)
  - Gait inability [Unknown]
  - Impaired quality of life [Unknown]
  - Abdominal wall wound [Unknown]
  - Pain [Recovering/Resolving]
  - Liver disorder [Unknown]
  - Bedridden [Unknown]
  - Product administration error [Unknown]
  - Arthritis [Unknown]
  - Wrong technique in product usage process [Unknown]
  - Dysstasia [Unknown]
  - Agitation [Unknown]
  - Abdominal hernia [Unknown]
  - Injection site pain [Unknown]

NARRATIVE: CASE EVENT DATE: 2019
